FAERS Safety Report 4683369-2 (Version None)
Quarter: 2005Q2

REPORT INFORMATION
  Report Type: 
  Country: None (occurrence: None)
  Receive Date: 20050606
  Receipt Date: 20050606
  Transmission Date: 20051028
  Serious: Yes (Death, Life-Threatening)
  Sender: FDA-Public Use
  Company Number: None

PATIENT
  Age: 85 Year
  Sex: Male
  Weight: 67.13 kg

DRUGS (25)
  1. FONDAPARINUX 2.5 MG [Suspect]
     Indication: ANTICOAGULANT THERAPY
     Dosage: 2.5 MG DAILY SUBCUTANEO
     Route: 058
     Dates: start: 20050405, end: 20050406
  2. WARFARIN SODIUM [Suspect]
     Indication: ANTICOAGULANT THERAPY
     Dosage: 5 MG DAILY ORAL
     Route: 048
     Dates: start: 20050404, end: 20050405
  3. DIOVAN [Concomitant]
  4. NASACORT [Concomitant]
  5. ALBUTEROL [Concomitant]
  6. LASIX [Concomitant]
  7. ETODOLAC [Concomitant]
  8. DARVOCET-N 100 [Concomitant]
  9. MECLIZINE [Concomitant]
  10. ENBREL [Concomitant]
  11. TRUSOPT [Concomitant]
  12. CALCIUM GLUCONATE [Concomitant]
  13. VIT D [Concomitant]
  14. M.V.I. [Concomitant]
  15. ALPHAGAN [Concomitant]
  16. VANCOMYCIN [Concomitant]
  17. BENADRYL [Concomitant]
  18. PHENERGAN [Concomitant]
  19. PEPCID [Concomitant]
  20. HYDROMORPHONE HCL [Concomitant]
  21. MAGCITRATE [Concomitant]
  22. SORBITOL/MOM/MINERAL OIL/GLYCERIN ENEMA [Concomitant]
  23. ACETAMINOPHEN [Concomitant]
  24. OXYCODONE HCL [Concomitant]
  25. LR IVF [Concomitant]

REACTIONS (12)
  - ABDOMINAL DISTENSION [None]
  - ABDOMINAL PAIN [None]
  - ANAEMIA [None]
  - ASPIRATION [None]
  - CARDIO-RESPIRATORY ARREST [None]
  - CREPITATIONS [None]
  - GASTROINTESTINAL HAEMORRHAGE [None]
  - HYPOTENSION [None]
  - HYPOXIA [None]
  - POST PROCEDURAL COMPLICATION [None]
  - RENAL FAILURE ACUTE [None]
  - RENAL TUBULAR NECROSIS [None]
